FAERS Safety Report 4852761-5 (Version None)
Quarter: 2005Q4

REPORT INFORMATION
  Report Type: 
  Country: None (occurrence: None)
  Receive Date: 20051125
  Receipt Date: 20050801
  Transmission Date: 20060501
  Serious: Yes (Hospitalization)
  Sender: FDA-Public Use
  Company Number: HQWYE677203AUG05

PATIENT
  Age: 44 Year
  Sex: Male
  Weight: 99.8 kg

DRUGS (1)
  1. ZOSYN [Suspect]
     Indication: OSTEOMYELITIS
     Dosage: 3.375 G 1X PER 6 HR, INTRAVENOUS
     Route: 042
     Dates: start: 20050711, end: 20050731

REACTIONS (3)
  - AGRANULOCYTOSIS [None]
  - PYREXIA [None]
  - THROMBOCYTOPENIA [None]
